FAERS Safety Report 17898884 (Version 2)
Quarter: 2020Q2

REPORT INFORMATION
  Report Type: Spontaneous
  Country: CA (occurrence: CA)
  Receive Date: 20200616
  Receipt Date: 20200625
  Transmission Date: 20200714
  Serious: No
  Sender: FDA-Public Use
  Company Number: CA-ABBVIE-20K-028-3446746-00

PATIENT
  Age: 43 Year
  Sex: Female

DRUGS (1)
  1. ORILISSA [Suspect]
     Active Substance: ELAGOLIX SODIUM
     Indication: PRODUCT USED FOR UNKNOWN INDICATION
     Route: 048
     Dates: start: 2020

REACTIONS (7)
  - Cervix disorder [Unknown]
  - Metrorrhagia [Unknown]
  - Abdominal tenderness [Unknown]
  - Abdominal pain lower [Not Recovered/Not Resolved]
  - Endometriosis [Not Recovered/Not Resolved]
  - Menorrhagia [Recovered/Resolved]
  - Ovulation pain [Unknown]
